FAERS Safety Report 10710413 (Version 2)
Quarter: 2015Q1

REPORT INFORMATION
  Report Type: Spontaneous
  Country: FR (occurrence: None)
  Receive Date: 20150112
  Receipt Date: 20150213
  Transmission Date: 20150721
  Serious: Yes (Death, Life-Threatening)
  Sender: FDA-Public Use
  Company Number: 2694238

PATIENT
  Age: 54 Year
  Sex: Female

DRUGS (12)
  1. ENDOXAN [Suspect]
     Active Substance: CYCLOPHOSPHAMIDE
     Indication: BREAST CANCER
     Dosage: 940 MG MILLIGRAM(S) (1 DAY)
     Route: 041
     Dates: start: 20141003, end: 20141113
  2. BISOPROLOL [Concomitant]
     Active Substance: BISOPROLOL
  3. OLMETEC [Concomitant]
     Active Substance: OLMESARTAN MEDOXOMIL
  4. INEXIUM [Concomitant]
     Active Substance: ESOMEPRAZOLE
  5. EPIRUBICINE [Suspect]
     Active Substance: EPIRUBICIN
     Indication: BREAST CANCER
     Dosage: 186 MG MILLIGRAM(S) (1 DAY)
     Route: 041
     Dates: start: 20141003, end: 20141113
  6. DIAMICRON [Concomitant]
     Active Substance: GLICLAZIDE
  7. PACLITAXEL. [Suspect]
     Active Substance: PACLITAXEL
     Indication: BREAST CANCER
     Dosage: 186 MG MILLIGRAM(S) (1 DAY)
     Route: 041
     Dates: start: 20140905, end: 20140919
  8. PREVISCAN [Concomitant]
     Active Substance: FLUINDIONE
  9. CRESTOR [Concomitant]
     Active Substance: ROSUVASTATIN CALCIUM
  10. LASILIX [Concomitant]
     Active Substance: FUROSEMIDE
  11. FLUOROURACILE [Suspect]
     Active Substance: FLUOROURACIL
     Indication: BREAST CANCER
     Dosage: 950 MG MILLIGRAM(S)  (1 DAY)
     Route: 041
     Dates: start: 20141003, end: 20141113
  12. BACTRIM [Concomitant]
     Active Substance: SULFAMETHOXAZOLE\TRIMETHOPRIM

REACTIONS (2)
  - Cardiogenic shock [None]
  - Cardiotoxicity [None]

NARRATIVE: CASE EVENT DATE: 20141216
